FAERS Safety Report 7919186 (Version 2)
Quarter: 2012Q4

REPORT INFORMATION
  Report Type: 
  Country: US (occurrence: US)
  Receive Date: 20110428
  Receipt Date: 20121018
  Transmission Date: 20130627
  Serious: No
  Sender: FDA-Public Use
  Company Number: US-B.I. PHARMACEUTICALS,INC./RIDGEFIELD-2011-BP-11019BP

PATIENT
  Sex: Female

DRUGS (9)
  1. SPIRIVA HANDIHALER [Suspect]
     Indication: CHRONIC OBSTRUCTIVE PULMONARY DISEASE
     Dosage: 18 mcg
     Route: 055
     Dates: end: 201209
  2. SPIRIVA HANDIHALER [Suspect]
     Route: 048
  3. HCTZ [Concomitant]
     Indication: HYPERTENSION
  4. CELEBREX [Concomitant]
     Indication: ARTHRITIS
  5. PRAVASTATIN [Concomitant]
     Indication: BLOOD CHOLESTEROL INCREASED
  6. OMEPRAZOLE [Concomitant]
     Indication: GASTROOESOPHAGEAL REFLUX DISEASE
  7. EFFEXOR [Concomitant]
     Indication: ANXIETY
  8. LORAZEPAM [Concomitant]
     Indication: NERVOUSNESS
  9. METOPROLOL [Concomitant]
     Indication: HYPERTENSION

REACTIONS (5)
  - Incorrect route of drug administration [Unknown]
  - Swollen tongue [Recovered/Resolved]
  - Dysuria [Recovered/Resolved]
  - Lip swelling [Recovered/Resolved]
  - Dysphagia [Recovered/Resolved]
